FAERS Safety Report 24605344 (Version 2)
Quarter: 2025Q2

REPORT INFORMATION
  Report Type: Report from Study
  Country: US (occurrence: US)
  Receive Date: 20241111
  Receipt Date: 20250403
  Transmission Date: 20250716
  Serious: No
  Sender: SANOFI AVENTIS
  Company Number: US-SA-2024SA322282

PATIENT
  Age: 50 Year
  Sex: Female
  Weight: 111 kg

DRUGS (8)
  1. DUPIXENT [Suspect]
     Active Substance: DUPILUMAB
     Indication: Asthma
     Dosage: 300 MG, QOW
     Route: 058
     Dates: start: 20200901
  2. MELOXICAM [Concomitant]
     Active Substance: MELOXICAM
  3. PREMARIN [Concomitant]
     Active Substance: ESTROGENS, CONJUGATED
  4. BREO ELLIPTA [Concomitant]
     Active Substance: FLUTICASONE FUROATE\VILANTEROL TRIFENATATE
  5. SINGULAIR [Concomitant]
     Active Substance: MONTELUKAST SODIUM
  6. VITAMIN D3 [Concomitant]
     Active Substance: CHOLECALCIFEROL
  7. MAGNESIUM [Concomitant]
     Active Substance: MAGNESIUM
  8. ALBUTEROL SULFATE [Concomitant]
     Active Substance: ALBUTEROL SULFATE
     Indication: Asthma

REACTIONS (6)
  - Eye pain [Unknown]
  - Eye swelling [Unknown]
  - Vitamin D deficiency [Unknown]
  - Rash [Recovered/Resolved]
  - Arthralgia [Unknown]
  - Therapeutic response decreased [Unknown]

NARRATIVE: CASE EVENT DATE: 20200901
